FAERS Safety Report 17928382 (Version 2)
Quarter: 2020Q3

REPORT INFORMATION
  Report Type: Spontaneous
  Country: JP (occurrence: JP)
  Receive Date: 20200622
  Receipt Date: 20200703
  Transmission Date: 20201103
  Serious: Yes (Other)
  Sender: FDA-Public Use
  Company Number: JP-009507513-2006JPN001556J

PATIENT
  Age: 89 Year
  Sex: Female

DRUGS (1)
  1. BELSOMRA [Suspect]
     Active Substance: SUVOREXANT
     Indication: INSOMNIA
     Dosage: UNK
     Route: 048
     Dates: start: 20200407

REACTIONS (2)
  - Dementia [Unknown]
  - Dysphagia [Unknown]

NARRATIVE: CASE EVENT DATE: 2020
